FAERS Safety Report 16137224 (Version 1)
Quarter: 2019Q1

REPORT INFORMATION
  Report Type: Spontaneous
  Country: CA (occurrence: CA)
  Receive Date: 20190330
  Receipt Date: 20190330
  Transmission Date: 20190418
  Serious: Yes (Other)
  Sender: FDA-Public Use
  Company Number: CA-ROCHE-2290227

PATIENT
  Sex: Male

DRUGS (1)
  1. CELLCEPT [Suspect]
     Active Substance: MYCOPHENOLATE MOFETIL\MYCOPHENOLATE MOFETIL HYDROCHLORIDE
     Indication: CENTRAL NERVOUS SYSTEM VASCULITIS
     Route: 065
     Dates: start: 201901, end: 2019

REACTIONS (3)
  - Diarrhoea [Unknown]
  - Hyperuricaemia [Unknown]
  - Cerebral ischaemia [Unknown]
